FAERS Safety Report 5429624-X (Version None)
Quarter: 2007Q3

REPORT INFORMATION
  Report Type: 
  Country: None (occurrence: None)
  Receive Date: 20070829
  Receipt Date: 20070820
  Transmission Date: 20080115
  Serious: Yes (Hospitalization, Other)
  Sender: FDA-Public Use
  Company Number: US-ELI_LILLY_AND_COMPANY-US200708004025

PATIENT
  Age: 78 Year
  Sex: Female

DRUGS (5)
  1. FORTEO [Suspect]
     Indication: OSTEOPOROSIS
     Dates: start: 20050201, end: 20061001
  2. VICODIN [Concomitant]
     Indication: PAIN
  3. ACIPHEX [Concomitant]
     Indication: GASTROOESOPHAGEAL REFLUX DISEASE
  4. ENABLEX [Concomitant]
     Indication: BLADDER DISORDER
  5. LISINOPRIL [Concomitant]
     Indication: HYPERTENSION

REACTIONS (5)
  - BONE DISORDER [None]
  - FOOT OPERATION [None]
  - PAIN [None]
  - ROAD TRAFFIC ACCIDENT [None]
  - SHOULDER OPERATION [None]
